FAERS Safety Report 6948061-X (Version None)
Quarter: 2010Q3

REPORT INFORMATION
  Report Type: 
  Country: None (occurrence: None)
  Receive Date: 20100828
  Receipt Date: 20091012
  Transmission Date: 20110219
  Serious: No
  Sender: FDA-Public Use
  Company Number: US-ABBOTT-09P-163-0602879-00

PATIENT
  Sex: Female

DRUGS (1)
  1. NIASPAN [Suspect]
     Indication: WRONG DRUG ADMINISTERED
     Dosage: ONCE
     Route: 048
     Dates: start: 20091012, end: 20091012

REACTIONS (3)
  - FLUSHING [None]
  - SKIN WARM [None]
  - WRONG DRUG ADMINISTERED [None]
